FAERS Safety Report 21747422 (Version 3)
Quarter: 2023Q1

REPORT INFORMATION
  Report Type: Spontaneous
  Country: FR (occurrence: FR)
  Receive Date: 20221219
  Receipt Date: 20230214
  Transmission Date: 20230418
  Serious: Yes (Life-Threatening, Other)
  Sender: FDA-Public Use
  Company Number: FR-GSKCCFEMEA-Case-01633081_AE-65429

PATIENT

DRUGS (2)
  1. ALBUTEROL [Suspect]
     Active Substance: ALBUTEROL
     Indication: Respiratory disorder
     Dosage: 100 UG
  2. ALBUTEROL [Suspect]
     Active Substance: ALBUTEROL
     Indication: Asthma

REACTIONS (5)
  - Dyspnoea [Unknown]
  - Foreign body in respiratory tract [Recovered/Resolved]
  - Asphyxia [Recovered/Resolved]
  - Panic reaction [Recovered/Resolved with Sequelae]
  - Injury [Unknown]
